FAERS Safety Report 4921422-6 (Version None)
Quarter: 2006Q1

REPORT INFORMATION
  Report Type: 
  Country: None (occurrence: None)
  Receive Date: 20060221
  Receipt Date: 20060206
  Transmission Date: 20060701
  Serious: Yes (Death, Other)
  Sender: FDA-Public Use
  Company Number: 2006BH002426

PATIENT

DRUGS (4)
  1. VINCRISTINE SULFATE [Suspect]
     Indication: AMYLOIDOSIS
     Dosage: IV
     Route: 042
  2. DEXAMETHASONE [Suspect]
     Indication: AMYLOIDOSIS
     Dosage: IV
     Route: 042
  3. ADRIAMYCIN PFS [Suspect]
     Indication: AMYLOIDOSIS
     Dosage: IV
     Route: 042
  4. MELPHALAN (MELPHALAN) [Suspect]
     Indication: STEM CELL TRANSPLANT
     Dosage: IV
     Route: 042

REACTIONS (1)
  - CEREBRAL HAEMORRHAGE [None]
